FAERS Safety Report 23377449 (Version 1)
Quarter: 2024Q1

REPORT INFORMATION
  Report Type: Spontaneous
  Country: US (occurrence: None)
  Receive Date: 20240105
  Receipt Date: 20240105
  Transmission Date: 20240409
  Serious: Yes (Hospitalization, Other)
  Sender: FDA-Public Use
  Company Number: None

PATIENT
  Age: 64 Year
  Sex: Female

DRUGS (14)
  1. AMBRISENTAN [Suspect]
     Active Substance: AMBRISENTAN
     Indication: Pulmonary arterial hypertension
     Dosage: FREQUENCY : DAILY;?
     Route: 048
     Dates: start: 20140203
  2. ATORVASTATIN [Concomitant]
  3. DILTIAZEM [Concomitant]
  4. VITAMINS [Concomitant]
     Active Substance: VITAMINS
  5. FOLIC ACID [Concomitant]
  6. VIT D3 [Concomitant]
  7. INTRANASAL OXYGEN [Concomitant]
  8. CULTURELLE [Concomitant]
  9. SUMATRIPAN [Concomitant]
  10. FERROUS SULFATE [Concomitant]
  11. DICLOFENAC TOP GEL [Concomitant]
  12. SPIRONOCLACTONE [Concomitant]
  13. FUROSEMIDE [Concomitant]
  14. EXEDRIN [Concomitant]

REACTIONS (5)
  - Back pain [None]
  - Nausea [None]
  - Vomiting [None]
  - Diarrhoea [None]
  - Food poisoning [None]

NARRATIVE: CASE EVENT DATE: 20231229
